FAERS Safety Report 9203946 (Version 1)
Quarter: 2013Q2

REPORT INFORMATION
  Report Type: Spontaneous
  Country: US (occurrence: US)
  Receive Date: 20130402
  Receipt Date: 20130402
  Transmission Date: 20140414
  Serious: Yes (Other)
  Sender: FDA-Public Use
  Company Number: US-BAYER-2013-039778

PATIENT
  Age: 71 Year
  Sex: Female

DRUGS (1)
  1. BAYER GENUINE ASPIRIN ORIGINAL STRENGTH [Suspect]

REACTIONS (2)
  - Blood disorder [None]
  - Skin disorder [None]
